FAERS Safety Report 6573055-6 (Version None)
Quarter: 2010Q1

REPORT INFORMATION
  Report Type: 
  Country: None (occurrence: None)
  Receive Date: 20100208
  Receipt Date: 20100128
  Transmission Date: 20100710
  Serious: Yes (Other)
  Sender: FDA-Public Use
  Company Number: BR-BAYER-201010988LA

PATIENT
  Age: 32 Year
  Sex: Female
  Weight: 60 kg

DRUGS (1)
  1. MIRENA [Suspect]
     Indication: INTRA-UTERINE CONTRACEPTIVE DEVICE
     Dosage: FREQUENCY: CONTINUOUS, MIRENA WAS INSERTED 14 DAYS AFTER MENSTRUATION
     Route: 015
     Dates: start: 20100114

REACTIONS (5)
  - ABDOMINAL PAIN [None]
  - DEVICE EXPULSION [None]
  - HYPOMENORRHOEA [None]
  - PYREXIA [None]
  - SYNCOPE [None]
